FAERS Safety Report 4475921-4 (Version None)
Quarter: 2004Q4

REPORT INFORMATION
  Report Type: 
  Country: None (occurrence: None)
  Receive Date: 20041012
  Receipt Date: 20040929
  Transmission Date: 20050328
  Serious: Yes (Disabling, Other)
  Sender: FDA-Public Use
  Company Number: 2004063883

PATIENT
  Age: 53 Year
  Sex: Female

DRUGS (2)
  1. GLADEM (SERTRALINE) [Suspect]
     Indication: DEPRESSION
     Dosage: 50 MG (50 MG)
  2. ESTROGEN NOS (ESTROGEN NOS) [Concomitant]

REACTIONS (6)
  - ANOSMIA [None]
  - DIFFICULTY IN WALKING [None]
  - DYSAESTHESIA [None]
  - HYPOAESTHESIA [None]
  - MUSCLE CRAMP [None]
  - MUSCLE TWITCHING [None]
